FAERS Safety Report 5419139-7 (Version None)
Quarter: 2007Q3

REPORT INFORMATION
  Report Type: 
  Country: None (occurrence: None)
  Receive Date: 20070820
  Receipt Date: 20070813
  Transmission Date: 20080115
  Serious: Yes (Life-Threatening, Other)
  Sender: FDA-Public Use
  Company Number: PHBS2007IT13542

PATIENT
  Age: 59 Year
  Sex: Female

DRUGS (3)
  1. CYCLOSPORINE [Suspect]
     Indication: RENAL TRANSPLANT
     Route: 065
     Dates: start: 19950101, end: 20060101
  2. MYCOPHENOLATE MOFETIL [Suspect]
     Indication: RENAL TRANSPLANT
     Route: 065
     Dates: start: 19990101, end: 20060101
  3. METHYLPREDNISOLONE 16MG TAB [Concomitant]
     Indication: RENAL TRANSPLANT
     Route: 065

REACTIONS (16)
  - ARTHRALGIA [None]
  - ARTHRITIS [None]
  - CELL-MEDIATED IMMUNE DEFICIENCY [None]
  - CREATININE RENAL CLEARANCE DECREASED [None]
  - INJECTION SITE ULCER [None]
  - NEPHROTIC SYNDROME [None]
  - PROTEINURIA [None]
  - PYREXIA [None]
  - RENAL IMPAIRMENT [None]
  - SCEDOSPORIUM INFECTION [None]
  - SKIN INFLAMMATION [None]
  - SKIN LESION EXCISION [None]
  - SKIN NODULE [None]
  - STEROID THERAPY [None]
  - SUBCUTANEOUS NODULE [None]
  - TENDONITIS [None]
